FAERS Safety Report 6672107-X (Version None)
Quarter: 2010Q2

REPORT INFORMATION
  Report Type: 
  Country: None (occurrence: None)
  Receive Date: 20100407
  Receipt Date: 20100407
  Transmission Date: 20101027
  Serious: Yes (Life-Threatening, Hospitalization, Disabling)
  Sender: FDA-Public Use
  Company Number: None

PATIENT
  Age: 59 Year
  Sex: Female
  Weight: 96 kg

DRUGS (1)
  1. OMNIPAQUE 140 [Suspect]
     Indication: ACUTE MYOCARDIAL INFARCTION
     Dosage: (1 DOSE)
     Dates: start: 20100119, end: 20100119

REACTIONS (3)
  - ANAEMIA [None]
  - HYPERPHOSPHATAEMIA [None]
  - RENAL FAILURE ACUTE [None]
